FAERS Safety Report 4553561-6 (Version None)
Quarter: 2004Q4

REPORT INFORMATION
  Report Type: 
  Country: None (occurrence: None)
  Receive Date: 20041227
  Receipt Date: 20041105
  Transmission Date: 20050328
  Serious: No
  Sender: FDA-Public Use
  Company Number: 04P-163-0247408-00

PATIENT
  Age: 61 Year
  Sex: Female
  Weight: 71.6683 kg

DRUGS (12)
  1. HUMIRA [Suspect]
     Indication: PSORIATIC ARTHROPATHY
     Dosage: SEE IMAGE
     Route: 058
     Dates: start: 20031016, end: 20040101
  2. HUMIRA [Suspect]
     Indication: PSORIATIC ARTHROPATHY
     Dosage: SEE IMAGE
     Route: 058
     Dates: start: 20041006
  3. LEVOTHYROXINE SODIUM [Concomitant]
  4. ENALAPRIL MALEATE [Concomitant]
  5. FOLIC ACID [Concomitant]
  6. PANTOPRAZOLE [Concomitant]
  7. FENOFIBRATE [Concomitant]
  8. OXYBUTYNIN [Concomitant]
  9. METHOTREXATE [Concomitant]
  10. COUMADIN [Concomitant]
  11. METROPOLOL [Concomitant]
  12. DOCUSATE SODIUM [Concomitant]

REACTIONS (5)
  - ANTICOAGULATION DRUG LEVEL BELOW THERAPEUTIC [None]
  - INJECTION SITE ERYTHEMA [None]
  - INJECTION SITE PRURITUS [None]
  - INJECTION SITE REACTION [None]
  - INJECTION SITE SWELLING [None]
